FAERS Safety Report 20369491 (Version 1)
Quarter: 2022Q1

REPORT INFORMATION
  Report Type: Spontaneous
  Country: US (occurrence: None)
  Receive Date: 20220124
  Receipt Date: 20220124
  Transmission Date: 20220423
  Serious: Yes (Death)
  Sender: FDA-Public Use
  Company Number: None

PATIENT
  Sex: Male

DRUGS (2)
  1. GENOTROPIN [Suspect]
     Active Substance: SOMATROPIN
     Indication: Hypopituitarism
     Dosage: 0.6MG DAILY?
     Route: 058
     Dates: start: 20220108
  2. GENOTROPIN [Suspect]
     Active Substance: SOMATROPIN
     Indication: Pulmonary arterial hypertension

REACTIONS (1)
  - Death [None]
